FAERS Safety Report 12464450 (Version 1)
Quarter: 2016Q2

REPORT INFORMATION
  Report Type: Spontaneous
  Country: HU (occurrence: HU)
  Receive Date: 20160614
  Receipt Date: 20160614
  Transmission Date: 20160815
  Serious: Yes (Hospitalization, Other)
  Sender: FDA-Public Use
  Company Number: HU-BAYER-2016-115537

PATIENT
  Age: 38 Year
  Sex: Female

DRUGS (1)
  1. MIRENA [Suspect]
     Active Substance: LEVONORGESTREL
     Indication: GENITAL HAEMORRHAGE
     Dosage: 20 ?G/D, CONT
     Route: 015
     Dates: start: 20160407, end: 20160520

REACTIONS (7)
  - Off label use [None]
  - Ovarian cyst [None]
  - Sinus bradycardia [None]
  - Iron deficiency anaemia [None]
  - Genital haemorrhage [Recovered/Resolved]
  - Loss of consciousness [None]
  - Presyncope [Recovered/Resolved]

NARRATIVE: CASE EVENT DATE: 20160512
